FAERS Safety Report 6721709-0 (Version None)
Quarter: 2010Q2

REPORT INFORMATION
  Report Type: 
  Country: None (occurrence: None)
  Receive Date: 20100512
  Receipt Date: 20100507
  Transmission Date: 20101027
  Serious: Yes (Hospitalization)
  Sender: FDA-Public Use
  Company Number: CA-WYE-G05538810

PATIENT
  Age: 10 Year
  Sex: Female

DRUGS (2)
  1. RAPAMUNE [Suspect]
     Indication: RENAL TRANSPLANT
     Route: 048
     Dates: end: 20091228
  2. RAPAMUNE [Suspect]
     Route: 048
     Dates: start: 20100108

REACTIONS (3)
  - IMMUNOSUPPRESSANT DRUG LEVEL INCREASED [None]
  - MYCOPLASMA INFECTION [None]
  - PNEUMONITIS [None]
